FAERS Safety Report 19088811 (Version 2)
Quarter: 2021Q2

REPORT INFORMATION
  Report Type: Report from Study
  Country: CA (occurrence: CA)
  Receive Date: 20210403
  Receipt Date: 20210506
  Transmission Date: 20210717
  Serious: Yes (Hospitalization, Other)
  Sender: FDA-Public Use
  Company Number: CA-B.I. PHARMACEUTICALS,INC./RIDGEFIELD-2017-BI-014652

PATIENT
  Age: 78 Year
  Sex: Male

DRUGS (3)
  1. OFEV [Suspect]
     Active Substance: NINTEDANIB
     Indication: IDIOPATHIC PULMONARY FIBROSIS
     Dosage: 200MG
     Route: 048
     Dates: start: 20161215
  2. GASTROLYTE [Concomitant]
     Active Substance: DEXTROSE\ELECTROLYTES NOS
     Indication: PRODUCT USED FOR UNKNOWN INDICATION
  3. OFEV [Suspect]
     Active Substance: NINTEDANIB
     Route: 048
     Dates: start: 20161213

REACTIONS (18)
  - Vomiting [Unknown]
  - Delirium [Not Recovered/Not Resolved]
  - Confusional state [Not Recovered/Not Resolved]
  - Product odour abnormal [Unknown]
  - Diarrhoea [Not Recovered/Not Resolved]
  - Faeces soft [Not Recovered/Not Resolved]
  - Pyrexia [Unknown]
  - Nausea [Unknown]
  - Vomiting [Not Recovered/Not Resolved]
  - Flatulence [Not Recovered/Not Resolved]
  - Fall [Unknown]
  - Seizure [Recovered/Resolved]
  - Fall [Recovered/Resolved]
  - Breath odour [Not Recovered/Not Resolved]
  - Ageusia [Not Recovered/Not Resolved]
  - Seizure [Unknown]
  - Dementia Alzheimer^s type [Not Recovered/Not Resolved]
  - Abnormal faeces [Unknown]

NARRATIVE: CASE EVENT DATE: 20170313
